FAERS Safety Report 15663177 (Version 1)
Quarter: 2018Q4

REPORT INFORMATION
  Report Type: Spontaneous
  Country: US (occurrence: US)
  Receive Date: 20181128
  Receipt Date: 20181128
  Transmission Date: 20190205
  Serious: No
  Sender: FDA-Public Use
  Company Number: US-SA-2018SA323361

PATIENT
  Age: 46 Year
  Sex: Male
  Weight: 64 kg

DRUGS (19)
  1. NORMAL SALINE [Concomitant]
     Active Substance: SODIUM CHLORIDE
     Dosage: 0.9 %
     Dates: start: 20180502
  2. LIDOCAINE. [Concomitant]
     Active Substance: LIDOCAINE
     Dosage: 4 %, PRN
  3. VENTOLINE [SALBUTAMOL] [Concomitant]
     Active Substance: ALBUTEROL SULFATE
     Dosage: 1 DF, Q4H
     Dates: start: 20150930
  4. ACIDOPHILUS PROBIOTIC [Concomitant]
     Dosage: 1 DF, QD
     Dates: start: 20120815
  5. SODIUM CHLORIDE. [Concomitant]
     Active Substance: SODIUM CHLORIDE
     Dosage: 0.9 %
     Dates: start: 20180502
  6. MUCINEX [Concomitant]
     Active Substance: GUAIFENESIN
     Dosage: 600 MG, QD
     Dates: start: 20170630
  7. DIGESTIVE ENZYME [Concomitant]
     Active Substance: UNSPECIFIED INGREDIENT
     Dosage: 1 DF, QD
     Dates: start: 20131129
  8. DIPHENHYDRAMINE. [Concomitant]
     Active Substance: DIPHENHYDRAMINE
     Dosage: UNK
     Dates: start: 20180502
  9. EPINEPHRINE. [Concomitant]
     Active Substance: EPINEPHRINE
     Dosage: 0.3 MG, PRN
     Dates: start: 20180502
  10. RANITIDINE. [Concomitant]
     Active Substance: RANITIDINE
     Dosage: 300 MG, QD
  11. PLAQUENIL [HYDROXYCHLOROQUINE PHOSPHATE] [Concomitant]
     Active Substance: HYDROXYCHLOROQUINE DIPHOSPHATE
     Dosage: 200 MG, BID
     Dates: start: 20151027
  12. CALCIUM [Concomitant]
     Active Substance: CALCIUM
     Dosage: 1 DF
     Dates: start: 20120815
  13. FABRAZYME [Suspect]
     Active Substance: AGALSIDASE BETA
     Dosage: 1.09 MG/KG, QOW
     Route: 041
  14. STERILE WATER [Concomitant]
     Active Substance: WATER
     Dosage: 10 ML
     Dates: start: 20180502
  15. VITAMIN D [COLECALCIFEROL] [Concomitant]
     Dosage: 1 DF
     Dates: start: 20120815
  16. TESSALON [Concomitant]
     Active Substance: BENZONATATE
     Dosage: 1 DF, QD
     Dates: start: 20151027
  17. MULTIVITAMINUM [Concomitant]
     Dosage: 1 DF, QD
     Dates: start: 20120815
  18. CHANTIX [Concomitant]
     Active Substance: VARENICLINE TARTRATE
     Dosage: 0.5 MG, BID
     Dates: start: 20180206
  19. BIOTIN [Concomitant]
     Active Substance: BIOTIN
     Dosage: 1000 MG, QD
     Dates: start: 20120815

REACTIONS (1)
  - Sinusitis [Not Recovered/Not Resolved]
